FAERS Safety Report 9831860 (Version 2)
Quarter: 2014Q1

REPORT INFORMATION
  Report Type: Spontaneous
  Country: FR (occurrence: FR)
  Receive Date: 20140121
  Receipt Date: 20140121
  Transmission Date: 20141002
  Serious: Yes (Other)
  Sender: FDA-Public Use
  Company Number: PHHY2013FR120804

PATIENT
  Age: 53 Year
  Sex: Female

DRUGS (9)
  1. CICLOSPORIN [Suspect]
     Indication: LIVER TRANSPLANT
  2. CICLOSPORIN [Suspect]
     Indication: IMMUNOSUPPRESSION
  3. RIBAVIRIN [Suspect]
     Indication: HEPATITIS C
     Dosage: 600 MG, UNK
  4. PEGYLATED INTERFERON ALFA-2A [Suspect]
     Indication: HEPATITIS C
  5. TELAPREVIR [Suspect]
     Indication: HEPATITIS C
  6. MYCOPHENOLATE MOFETIL [Concomitant]
  7. ABACAVIR W/LAMIVUDINE [Concomitant]
     Indication: ANTIRETROVIRAL THERAPY
  8. TENOFOVIR [Concomitant]
     Dosage: 300 MG, UNK
  9. CORTICOSTEROIDS [Concomitant]
     Indication: IMMUNOSUPPRESSION

REACTIONS (5)
  - Thrombocytopenia [Unknown]
  - Hypertrichosis [Unknown]
  - Gingival hyperplasia [Unknown]
  - Anaemia [Unknown]
  - Neutropenia [Unknown]
